FAERS Safety Report 4608673-5 (Version None)
Quarter: 2005Q1

REPORT INFORMATION
  Report Type: 
  Country: None (occurrence: None)
  Receive Date: 20050315
  Receipt Date: 20050113
  Transmission Date: 20050727
  Serious: Yes (Hospitalization)
  Sender: FDA-Public Use
  Company Number: FR-MERCK-0501FRA00044

PATIENT
  Age: 62 Year
  Sex: Male
  Weight: 128 kg

DRUGS (17)
  1. ZOLPIDEM TARTRATE [Concomitant]
     Route: 048
     Dates: start: 20040426, end: 20040426
  2. ACETAMINOPHEN [Concomitant]
     Route: 048
     Dates: start: 20040423, end: 20040424
  3. ACETAMINOPHEN [Concomitant]
     Route: 048
     Dates: start: 20040429, end: 20040429
  4. LEVOFLOXACIN [Concomitant]
     Route: 065
     Dates: start: 20040429, end: 20040501
  5. LACTULOSE [Concomitant]
     Route: 048
     Dates: start: 20040425, end: 20040428
  6. ZOCOR [Suspect]
     Route: 048
     Dates: end: 20040424
  7. FUROSEMIDE [Suspect]
     Route: 048
     Dates: end: 20040424
  8. TICLOPIDINE HCL [Suspect]
     Indication: ARTERIAL DISORDER
     Route: 048
     Dates: end: 20040405
  9. SPIRONOLACTONE [Suspect]
     Route: 048
     Dates: end: 20040424
  10. ESOMEPRAZOLE MAGNESIUM [Concomitant]
     Route: 048
     Dates: end: 20040424
  11. METFORMIN HYDROCHLORIDE [Concomitant]
     Indication: DIABETES MELLITUS
     Route: 048
     Dates: end: 20040421
  12. BUFLOMEDIL HYDROCHLORIDE [Concomitant]
     Route: 048
     Dates: start: 19940101, end: 20040405
  13. CEFTRIAXONE SODIUM [Concomitant]
     Route: 051
     Dates: start: 20040426, end: 20040428
  14. CEFTRIAXONE SODIUM [Concomitant]
     Route: 051
     Dates: start: 20040423, end: 20040425
  15. CIPROFLOXACIN HYDROCHLORIDE [Concomitant]
     Route: 048
     Dates: start: 20040423, end: 20040428
  16. FILGRASTIM [Concomitant]
     Route: 048
     Dates: start: 20040424, end: 20040425
  17. FILGRASTIM [Concomitant]
     Route: 048
     Dates: start: 20040430, end: 20040430

REACTIONS (2)
  - BONE MARROW MYELOGRAM ABNORMAL [None]
  - PANCYTOPENIA [None]
